FAERS Safety Report 25289519 (Version 6)
Quarter: 2025Q3

REPORT INFORMATION
  Report Type: Report from Study
  Country: CA (occurrence: CA)
  Receive Date: 20250509
  Receipt Date: 20250718
  Transmission Date: 20251021
  Serious: Yes (Other)
  Sender: TAKEDA
  Company Number: CA-TAKEDA-2025TUS042829

PATIENT
  Age: 71 Year
  Sex: Female

DRUGS (9)
  1. VEDOLIZUMAB [Suspect]
     Active Substance: VEDOLIZUMAB
     Indication: Colitis ulcerative
  2. VEDOLIZUMAB [Suspect]
     Active Substance: VEDOLIZUMAB
     Dosage: 300 MILLIGRAM, Q4WEEKS
     Dates: start: 20250529
  3. VEDOLIZUMAB [Suspect]
     Active Substance: VEDOLIZUMAB
     Dosage: 300 MILLIGRAM, Q4WEEKS
     Dates: end: 20250626
  4. PREDNISONE [Concomitant]
     Active Substance: PREDNISONE
  5. MIRTAZAPINE [Concomitant]
     Active Substance: MIRTAZAPINE
  6. CLONAZEPAM [Concomitant]
     Active Substance: CLONAZEPAM
  7. ROSUVASTATIN [Concomitant]
     Active Substance: ROSUVASTATIN
  8. BISOPROLOL [Concomitant]
     Active Substance: BISOPROLOL
  9. TRIHEXYPHENIDYL [Concomitant]
     Active Substance: TRIHEXYPHENIDYL

REACTIONS (3)
  - Colitis ulcerative [Not Recovered/Not Resolved]
  - Drug ineffective [Unknown]
  - Off label use [Unknown]

NARRATIVE: CASE EVENT DATE: 20250529
